FAERS Safety Report 23202282 (Version 1)
Quarter: 2023Q4

REPORT INFORMATION
  Report Type: Spontaneous
  Country: US (occurrence: US)
  Receive Date: 20231120
  Receipt Date: 20231120
  Transmission Date: 20240110
  Serious: Yes (Hospitalization)
  Sender: FDA-Public Use
  Company Number: US-AMGEN-USASP2023203175

PATIENT
  Age: 58 Year
  Sex: Female

DRUGS (1)
  1. TAVNEOS [Suspect]
     Active Substance: AVACOPAN
     Indication: Microscopic polyangiitis
     Dosage: UNK
     Route: 065
     Dates: start: 20221011, end: 20231107

REACTIONS (4)
  - Arthritis [Unknown]
  - Osteopenia [Unknown]
  - Pain [Unknown]
  - Inflammation [Unknown]
